FAERS Safety Report 7391814-7 (Version None)
Quarter: 2011Q2

REPORT INFORMATION
  Report Type: 
  Country: None (occurrence: None)
  Receive Date: 20110404
  Receipt Date: 20110324
  Transmission Date: 20111010
  Serious: Yes (Hospitalization, Other)
  Sender: FDA-Public Use
  Company Number: US-SANOFI-AVENTIS-2010SA071377

PATIENT
  Age: 83 Year
  Sex: Male
  Weight: 77 kg

DRUGS (13)
  1. INVESTIGATIONAL DRUG [Suspect]
     Route: 042
     Dates: start: 20101004, end: 20101004
  2. METOPROLOL [Concomitant]
  3. LORTAB [Concomitant]
     Dates: start: 20101001
  4. VALSARTAN [Concomitant]
     Dates: start: 20101105
  5. INVESTIGATIONAL DRUG [Suspect]
     Route: 042
     Dates: start: 20101101, end: 20101101
  6. NEXIUM [Concomitant]
     Dates: start: 20100412
  7. HYDROCHLOROTHIAZIDE [Concomitant]
     Dates: start: 20101101
  8. DOCETAXEL [Suspect]
     Route: 041
     Dates: start: 20101007, end: 20101007
  9. AMOXICILLIN AND CLAVULANATE POTASSIUM [Concomitant]
     Dates: start: 20101105
  10. SIMVASTATIN [Concomitant]
     Dates: start: 20100901
  11. DOCETAXEL [Suspect]
     Route: 041
     Dates: start: 20101104, end: 20101104
  12. ALPRAZOLAM [Concomitant]
     Dates: start: 20100412
  13. DEXAMETHASONE [Concomitant]
     Dates: start: 20101101, end: 20101101

REACTIONS (5)
  - NEUTROPENIA [None]
  - MENTAL STATUS CHANGES [None]
  - RHABDOMYOLYSIS [None]
  - BLOOD CREATINE PHOSPHOKINASE INCREASED [None]
  - RENAL FAILURE [None]
